FAERS Safety Report 15696014 (Version 1)
Quarter: 2018Q4

REPORT INFORMATION
  Report Type: Report from Study
  Country: ES (occurrence: ES)
  Receive Date: 20181206
  Receipt Date: 20181206
  Transmission Date: 20190205
  Serious: Yes (Hospitalization)
  Sender: FDA-Public Use
  Company Number: ES-PFIZER INC-2018482576

PATIENT
  Sex: Female

DRUGS (9)
  1. HERCEPTIN [Concomitant]
     Active Substance: TRASTUZUMAB
     Indication: HER-2 POSITIVE BREAST CANCER
     Dosage: 4 MG/KG, CYCLIC (LOADING DOSE)
  2. PACLITAXEL HOSPIRA [Concomitant]
     Active Substance: PACLITAXEL
     Indication: HER-2 POSITIVE BREAST CANCER
     Dosage: 80 MG/M2, WEEKLY (12 WEEKS)
  3. METFORMINA TEVA [Suspect]
     Active Substance: METFORMIN HYDROCHLORIDE
     Indication: HER-2 POSITIVE BREAST CANCER
     Dosage: 425 MG, DAILY (ONE-HALF OF A TABLET) DAILY WITH DINNER)
  4. METFORMINA TEVA [Suspect]
     Active Substance: METFORMIN HYDROCHLORIDE
     Dosage: INCREASE WAS CARRIED OUT IN INCREMENTS OF 425 MG EVERY WEEK TO A TOTAL OF 850 MG TWICE-DAILY AFTER 4
  5. CYCLOPHOSPHAMIDE. [Suspect]
     Active Substance: CYCLOPHOSPHAMIDE
     Indication: HER-2 POSITIVE BREAST CANCER
     Dosage: 600 MG/M2, EVERY 3 WEEKS (FOUR COURSES)
  6. EPIRUBICIN HCL [Suspect]
     Active Substance: EPIRUBICIN HYDROCHLORIDE
     Indication: HER-2 POSITIVE BREAST CANCER
     Dosage: 75 MG/M2, EVERY 3 WEEKS (FOUR COURSES)
  7. FLUOROURACIL. [Suspect]
     Active Substance: FLUOROURACIL
     Indication: HER-2 POSITIVE BREAST CANCER
     Dosage: 600 MG/M2, EVERY 3 WEEKS (FOUR COURSES)
  8. HERCEPTIN [Concomitant]
     Active Substance: TRASTUZUMAB
     Dosage: 6 MG/KG, CYCLIC
  9. HERCEPTIN [Concomitant]
     Active Substance: TRASTUZUMAB
     Dosage: 2 MG/KG, WEEKLY (FOR 12 WEEKS)

REACTIONS (1)
  - Arthritis bacterial [Unknown]
